FAERS Safety Report 18175658 (Version 1)
Quarter: 2020Q3

REPORT INFORMATION
  Report Type: Spontaneous
  Country: JP (occurrence: JP)
  Receive Date: 20200820
  Receipt Date: 20200820
  Transmission Date: 20201103
  Serious: Yes (Life-Threatening, Hospitalization)
  Sender: FDA-Public Use
  Company Number: JP-TEVA-2020-JP-1814994

PATIENT
  Age: 18 Year
  Sex: Female

DRUGS (7)
  1. NOREPINEPHRINE. [Suspect]
     Active Substance: NOREPINEPHRINE
     Indication: HYPOTENSION
     Dosage: NOREPINEPHRINE AT 0.7UG/KG OF BODY WEIGHT/MIN
     Route: 065
  2. ATORVASTATIN [Suspect]
     Active Substance: ATORVASTATIN
     Indication: SUICIDE ATTEMPT
     Dosage: 1 TABLET OF ATORVASTATIN
     Route: 065
  3. VASOPRESSIN. [Suspect]
     Active Substance: VASOPRESSIN
     Indication: HYPOTENSION
     Dosage: 0.02 U/MIN
     Route: 065
  4. DAPAGLIFLOZIN. [Suspect]
     Active Substance: DAPAGLIFLOZIN
     Indication: SUICIDE ATTEMPT
     Dosage: 5 TABLETS OF DAPAGLIFLOZIN
     Route: 065
  5. METFORMIN [Suspect]
     Active Substance: METFORMIN HYDROCHLORIDE
     Indication: SUICIDE ATTEMPT
     Dosage: 64 TABLETS OF METFORMIN; 16000MG IN TOTAL
     Route: 065
  6. GLIMEPIRIDE. [Suspect]
     Active Substance: GLIMEPIRIDE
     Indication: SUICIDE ATTEMPT
     Dosage: 7 TABLETS OF GLIMEPIRIDE
     Route: 065
  7. VILDAGLIPTIN [Suspect]
     Active Substance: VILDAGLIPTIN
     Indication: SUICIDE ATTEMPT
     Dosage: 26 TABLETS OF VILDAGLIPTIN 50MG; 1,300MG IN TOTAL
     Route: 065

REACTIONS (21)
  - Disseminated intravascular coagulation [Recovering/Resolving]
  - Suicide attempt [Recovering/Resolving]
  - Drug ineffective [Unknown]
  - Rhabdomyolysis [Unknown]
  - Drug abuse [Recovering/Resolving]
  - Septic shock [Unknown]
  - Adrenal insufficiency [Unknown]
  - Capillary leak syndrome [Recovered/Resolved]
  - Compartment syndrome [Recovered/Resolved]
  - Lactic acidosis [Unknown]
  - Paralysis [Unknown]
  - Fluid overload [Unknown]
  - Pneumonia aspiration [Unknown]
  - Acute kidney injury [Unknown]
  - Loss of consciousness [Recovered/Resolved]
  - Muscle contracture [Unknown]
  - Prescription drug used without a prescription [Recovering/Resolving]
  - Hypoglycaemia [Recovered/Resolved]
  - Intentional overdose [Recovering/Resolving]
  - Bradypnoea [Recovering/Resolving]
  - Hypotension [Recovered/Resolved]
